FAERS Safety Report 23990169 (Version 1)
Quarter: 2024Q2

REPORT INFORMATION
  Report Type: Spontaneous
  Country: IT (occurrence: IT)
  Receive Date: 20240619
  Receipt Date: 20240619
  Transmission Date: 20240716
  Serious: Yes (Death, Other)
  Sender: FDA-Public Use
  Company Number: IT-BIOVITRUM-2024-IT-003485

PATIENT
  Sex: Male

DRUGS (1)
  1. ZYNLONTA [Suspect]
     Active Substance: LONCASTUXIMAB TESIRINE-LPYL
     Indication: Product used for unknown indication
     Dosage: ONLY DID THE FIRST CYCLE OF LONCASTUXIMAB THERAPY
     Dates: start: 20240214, end: 20240214

REACTIONS (2)
  - Sepsis [Fatal]
  - Photosensitivity reaction [Not Recovered/Not Resolved]

NARRATIVE: CASE EVENT DATE: 20240227
